FAERS Safety Report 21150451 (Version 1)
Quarter: 2022Q3

REPORT INFORMATION
  Report Type: Report from Study
  Country: US (occurrence: US)
  Receive Date: 20220729
  Receipt Date: 20220729
  Transmission Date: 20221027
  Serious: No
  Sender: FDA-Public Use
  Company Number: US-INCYTE CORPORATION-2022IN007022

PATIENT

DRUGS (1)
  1. JAKAFI [Suspect]
     Active Substance: RUXOLITINIB
     Indication: Leukaemia
     Dosage: UNK UNK, BID
     Route: 065

REACTIONS (4)
  - Pruritus [Unknown]
  - Product availability issue [Unknown]
  - Asthenia [Unknown]
  - Off label use [Unknown]
